FAERS Safety Report 11638080 (Version 2)
Quarter: 2016Q1

REPORT INFORMATION
  Report Type: Report from Study
  Country: BR (occurrence: BR)
  Receive Date: 20151016
  Receipt Date: 20160115
  Transmission Date: 20160525
  Serious: Yes (Other)
  Sender: FDA-Public Use
  Company Number: BR-ABBVIE-15K-020-1376226-00

PATIENT
  Age: 53 Year
  Sex: Male
  Weight: 63 kg

DRUGS (7)
  1. VIMOVO [Concomitant]
     Active Substance: ESOMEPRAZOLE MAGNESIUM\NAPROXEN
     Indication: SPONDYLITIS
     Route: 048
     Dates: start: 201507
  2. DIPYRONE [Concomitant]
     Active Substance: DIPYRONE
     Indication: PYREXIA
  3. NAPROXEN. [Concomitant]
     Active Substance: NAPROXEN
     Indication: PAIN
     Route: 048
  4. HUMIRA [Suspect]
     Active Substance: ADALIMUMAB
     Route: 058
     Dates: start: 20150312
  5. DIPYRONE [Concomitant]
     Active Substance: DIPYRONE
     Indication: PAIN
     Route: 048
  6. ENALAPRIL [Concomitant]
     Active Substance: ENALAPRIL
     Indication: HYPERTENSION
     Route: 048
     Dates: start: 2012
  7. HUMIRA [Suspect]
     Active Substance: ADALIMUMAB
     Indication: ANKYLOSING SPONDYLITIS
     Route: 058
     Dates: start: 20120607, end: 20150221

REACTIONS (38)
  - Swelling [Recovering/Resolving]
  - Rhinorrhoea [Unknown]
  - Abdominal pain [Not Recovered/Not Resolved]
  - Musculoskeletal stiffness [Unknown]
  - Osteoarthritis [Unknown]
  - Blood pressure abnormal [Unknown]
  - Neck pain [Not Recovered/Not Resolved]
  - Pulmonary mass [Unknown]
  - Weight decreased [Recovering/Resolving]
  - Influenza [Recovered/Resolved]
  - Bone pain [Not Recovered/Not Resolved]
  - Back pain [Not Recovered/Not Resolved]
  - Coronary artery occlusion [Recovering/Resolving]
  - Decreased appetite [Recovering/Resolving]
  - Pyrexia [Not Recovered/Not Resolved]
  - Arthropathy [Recovering/Resolving]
  - Bone density decreased [Unknown]
  - Aortic valve incompetence [Unknown]
  - Atelectasis [Unknown]
  - Pyrexia [Recovered/Resolved]
  - Chest pain [Unknown]
  - Pulmonary pain [Recovering/Resolving]
  - Insomnia [Unknown]
  - Coronary artery disease [Recovering/Resolving]
  - Osteosclerosis [Unknown]
  - Oropharyngeal pain [Unknown]
  - Malaise [Unknown]
  - Pain [Unknown]
  - Cardiac disorder [Recovering/Resolving]
  - Spondylitis [Unknown]
  - Pulmonary oedema [Recovered/Resolved]
  - Dyspnoea [Unknown]
  - Pleural effusion [Unknown]
  - Pain in extremity [Not Recovered/Not Resolved]
  - Abdominal pain upper [Not Recovered/Not Resolved]
  - Arthralgia [Unknown]
  - Intervertebral disc space narrowing [Unknown]
  - Exostosis [Unknown]

NARRATIVE: CASE EVENT DATE: 2012
